FAERS Safety Report 20374436 (Version 1)
Quarter: 2022Q1

REPORT INFORMATION
  Report Type: Spontaneous
  Country: US (occurrence: US)
  Receive Date: 20220125
  Receipt Date: 20220125
  Transmission Date: 20220423
  Serious: Yes (Other)
  Sender: FDA-Public Use
  Company Number: US-PFIZER INC-202200046804

PATIENT
  Age: 80 Year
  Sex: Male

DRUGS (2)
  1. SUNITINIB MALATE [Suspect]
     Active Substance: SUNITINIB MALATE
     Indication: Metastatic renal cell carcinoma
     Dosage: MAINTENANCE THERAPY
     Dates: start: 200705
  2. ZOLEDRONIC ACID [Suspect]
     Active Substance: ZOLEDRONIC ACID
     Indication: Metastatic renal cell carcinoma
     Dosage: MONTHLY INFUSIONS
     Dates: start: 200705

REACTIONS (1)
  - Osteonecrosis of external auditory canal [Unknown]

NARRATIVE: CASE EVENT DATE: 20210301
